FAERS Safety Report 4507766-0 (Version None)
Quarter: 2004Q4

REPORT INFORMATION
  Report Type: 
  Country: None (occurrence: None)
  Receive Date: 20041018
  Receipt Date: 20040827
  Transmission Date: 20050328
  Serious: No
  Sender: FDA-Public Use
  Company Number: 206658

PATIENT
  Age: 75 Year
  Sex: Male
  Weight: 69.6 kg

DRUGS (17)
  1. XOLAIR [Suspect]
     Indication: DRUG USE FOR UNKNOWN INDICATION
     Dosage: 300 MG, 1/MONTH, SUBCUTANEOUS
     Route: 058
     Dates: start: 20040331
  2. FLOVENT [Concomitant]
  3. ALLERGY IMMUNOTHERAPY (ALLERGENIC EXTRACTS) [Concomitant]
  4. ADVAIR (SALMETEROL XINAFOATE, FLUTICASONE PROPIONATE) [Concomitant]
  5. ALBUTEROL (ALBUTEROL SULFATE, ALBUTEROL) [Concomitant]
  6. SINGULAIR [Concomitant]
  7. NASALCROM [Concomitant]
  8. NASONEX [Concomitant]
  9. PLAVIX [Concomitant]
  10. LIPITOR [Concomitant]
  11. HYDROCHLOROTHIAZIDE [Concomitant]
  12. AVAPRO [Concomitant]
  13. BETOPTIC EYE DROPS (BETAXOLOL HYDROCHLORIDE) [Concomitant]
  14. KCL (POTASSIUM CHLORIDE) [Concomitant]
  15. ASPIRIN [Concomitant]
  16. GLYBURIDE [Concomitant]
  17. ZYRTEC [Concomitant]

REACTIONS (1)
  - BLOOD GLUCOSE INCREASED [None]
